FAERS Safety Report 8779314 (Version 2)
Quarter: 2012Q4

REPORT INFORMATION
  Report Type: 
  Country: US (occurrence: US)
  Receive Date: 20120911
  Receipt Date: 20121005
  Transmission Date: 20130627
  Serious: Yes (Other)
  Sender: FDA-Public Use
  Company Number: US-ELI_LILLY_AND_COMPANY-US201209000699

PATIENT
  Age: 68 Year
  Sex: Male
  Weight: 78.01 kg

DRUGS (7)
  1. EFFIENT [Suspect]
     Indication: STENT PLACEMENT
     Dosage: 10 mg, qd
     Dates: start: 201109
  2. METOPROLOL [Concomitant]
     Dosage: 50 mg, qd
  3. METOPROLOL [Concomitant]
     Dosage: 200 mg, unknown
  4. LISINOPRIL [Concomitant]
  5. HYDROCHLOROTHIAZIDE [Concomitant]
  6. BABY ASPIRIN [Concomitant]
  7. SIMVASTATIN [Concomitant]

REACTIONS (6)
  - Coronary angioplasty [Unknown]
  - Device occlusion [Unknown]
  - Chest pain [Recovered/Resolved]
  - Pain in jaw [Recovered/Resolved]
  - Dyspnoea [Recovered/Resolved]
  - Incorrect storage of drug [Unknown]
